FAERS Safety Report 6221632-4 (Version None)
Quarter: 2009Q2

REPORT INFORMATION
  Report Type: 
  Country: None (occurrence: None)
  Receive Date: 20090608
  Receipt Date: 20090526
  Transmission Date: 20091009
  Serious: Yes (Hospitalization)
  Sender: FDA-Public Use
  Company Number: FR-WYE-H09577009

PATIENT
  Age: 70 Year
  Sex: Male

DRUGS (1)
  1. CORDARONE [Suspect]
     Dosage: 200 MG TABLET (DOSE AND REGIMEN UNKNOWN); ORAL
     Route: 048
     Dates: end: 20090201

REACTIONS (4)
  - ACUTE CORONARY SYNDROME [None]
  - HYPERTHYROIDISM [None]
  - ISCHAEMIC CARDIOMYOPATHY [None]
  - TROPONIN INCREASED [None]
